FAERS Safety Report 9020234 (Version 1)
Quarter: 2013Q1

REPORT INFORMATION
  Report Type: Spontaneous
  Country: US (occurrence: US)
  Receive Date: 20130119
  Receipt Date: 20130119
  Transmission Date: 20140127
  Serious: No
  Sender: FDA-Public Use
  Company Number: US-ALLERGAN-1209703US

PATIENT
  Age: 31 Year
  Sex: Female

DRUGS (4)
  1. BOTOX? [Suspect]
     Indication: MIGRAINE
     Dosage: UNK
     Route: 030
     Dates: start: 20120614, end: 20120614
  2. TOPAMAX [Concomitant]
     Indication: MIGRAINE
     Dosage: UNK
  3. SINGULAIR                          /01362601/ [Concomitant]
     Indication: ASTHMA
     Dosage: UNK
  4. PHENERGAN                          /00033001/ [Concomitant]
     Indication: NAUSEA
     Dosage: UNK

REACTIONS (1)
  - Dyspnoea [Not Recovered/Not Resolved]
